FAERS Safety Report 5042368-1 (Version None)
Quarter: 2006Q2

REPORT INFORMATION
  Report Type: 
  Country: None (occurrence: None)
  Receive Date: 20060627
  Receipt Date: 20060614
  Transmission Date: 20061013
  Serious: Yes (Hospitalization, Other)
  Sender: FDA-Public Use
  Company Number: HQWYE411822JUL05

PATIENT
  Age: 86 Year
  Sex: Female

DRUGS (19)
  1. VENLAFAXINE HCL [Suspect]
     Indication: DEPRESSION
     Dosage: SEE IMAGE
     Route: 048
     Dates: start: 20050404, end: 20050410
  2. VENLAFAXINE HCL [Suspect]
     Indication: DEPRESSION
     Dosage: SEE IMAGE
     Route: 048
     Dates: start: 20050411, end: 20050414
  3. NIFEDIPINE [Concomitant]
  4. CEROCRAL (IFENPRODIL TARTRATE) [Concomitant]
  5. BROTIZOLAM (BROTIZOLAM) [Concomitant]
  6. ALOSENN (ACHILLEA/RUBIA FOOT TINCTURE/SENNA FRUIT/SENNA LEAF/TARAXACUM [Concomitant]
  7. CAMOSTAT MESILATE (CAMOSTAT MESILATE) [Concomitant]
  8. MILTAX (KETOPROFEN) [Concomitant]
  9. SANCOBA (CYANOCOBALAMIN) [Concomitant]
  10. RYTHMODAN (DISOPYRAMIDE) [Concomitant]
  11. FAMOTIDINE [Concomitant]
  12. NEUER (CETRAXATE HYDROCHLORIDE) [Concomitant]
  13. AZUNOL (SODIUM GUALENATE) [Concomitant]
  14. STICK ZENOL (CAMPHOR/DIPHENHYDRAMINE/METHYL SALICYLATE/PEPPERMINT OIL/ [Concomitant]
  15. SECTOR (KETOPROFEN) [Concomitant]
  16. HACHIAZULE (SODIUM BICARBONATE/SODIUM GUALENATE) [Concomitant]
  17. LACTOSE (LACTOSE) [Concomitant]
  18. LECICARBON (POTASSIUM BITARTRATE/SODIUM BICARBONATE) [Concomitant]
  19. GENTACIN (GENTAMICIN SULFATE) [Concomitant]

REACTIONS (4)
  - HYPOCHLORAEMIA [None]
  - HYPOKALAEMIA [None]
  - HYPONATRAEMIA [None]
  - HYPOPROTEINAEMIA [None]
